FAERS Safety Report 20175834 (Version 1)
Quarter: 2021Q4

REPORT INFORMATION
  Report Type: Spontaneous
  Country: US (occurrence: None)
  Receive Date: 20211210
  Receipt Date: 20211210
  Transmission Date: 20220303
  Serious: Yes (Hospitalization, Other)
  Sender: FDA-Public Use
  Company Number: None

PATIENT
  Age: 60 Year
  Sex: Female

DRUGS (1)
  1. CASIRIVIMAB\IMDEVIMAB [Suspect]
     Active Substance: CASIRIVIMAB\IMDEVIMAB
     Indication: COVID-19
     Dates: start: 20211206, end: 20211206

REACTIONS (6)
  - Mental disorder [None]
  - Dyspnoea [None]
  - Oxygen saturation decreased [None]
  - Acute respiratory failure [None]
  - Hypoxia [None]
  - Transaminases increased [None]

NARRATIVE: CASE EVENT DATE: 20211206
